FAERS Safety Report 20871742 (Version 5)
Quarter: 2022Q3

REPORT INFORMATION
  Report Type: Report from Study
  Country: JP (occurrence: JP)
  Receive Date: 20220525
  Receipt Date: 20220909
  Transmission Date: 20221027
  Serious: Yes (Death, Hospitalization, Other)
  Sender: FDA-Public Use
  Company Number: JP-GSKPMS-217893-0022-007

PATIENT

DRUGS (23)
  1. SOTROVIMAB [Suspect]
     Active Substance: SOTROVIMAB
     Indication: COVID-19
     Dosage: 500 MG/100ML/30MIN
     Route: 041
     Dates: start: 20220411, end: 20220411
  2. TOCILIZUMAB (GENETICAL RECOMBINATION) [Concomitant]
     Indication: COVID-19
     Dosage: 400 MG
     Dates: start: 20220413
  3. TOCILIZUMAB (GENETICAL RECOMBINATION) [Concomitant]
     Indication: COVID-19 pneumonia
  4. DEXAMETHASONE [Concomitant]
     Active Substance: DEXAMETHASONE
     Indication: COVID-19
     Dosage: 6.6 MG/DAY
     Dates: start: 20220413, end: 20220417
  5. DEXAMETHASONE [Concomitant]
     Active Substance: DEXAMETHASONE
     Indication: COVID-19 pneumonia
  6. DEXTROSE\SODIUM CHLORIDE\SODIUM LACTATE [Concomitant]
     Active Substance: DEXTROSE\SODIUM CHLORIDE\SODIUM LACTATE
     Dosage: UNK
     Dates: start: 20220411, end: 20220413
  7. FAMOTIDINE [Concomitant]
     Active Substance: FAMOTIDINE
     Dosage: ONCE PER 2 DAYS
     Dates: start: 20220411, end: 20220421
  8. FAMOTIDINE [Concomitant]
     Active Substance: FAMOTIDINE
     Dosage: UNK
     Dates: start: 20220422, end: 20220422
  9. CEFTRIAXONE NA INTRAVENOUS INJECTION [Concomitant]
     Dosage: UNK
     Dates: start: 20220411, end: 20220413
  10. ISOTONIC SODIUM CHLORIDE SOLUTION [Concomitant]
     Active Substance: SODIUM CHLORIDE
     Dosage: UNK
     Dates: start: 20220411, end: 20220413
  11. OXYGEN [Concomitant]
     Active Substance: OXYGEN
     Dosage: 6L, 4L, 2L,
     Dates: start: 20220411, end: 20220411
  12. OXYGEN [Concomitant]
     Active Substance: OXYGEN
     Dosage: 2L,2L
     Dates: start: 20220413, end: 20220413
  13. OXYGEN [Concomitant]
     Active Substance: OXYGEN
     Dosage: 2L,1L,1L,1L
     Dates: start: 20220414, end: 20220414
  14. OXYGEN [Concomitant]
     Active Substance: OXYGEN
     Dosage: 1L,1L,1L
     Dates: start: 20220415, end: 20220415
  15. OXYGEN [Concomitant]
     Active Substance: OXYGEN
     Dosage: 1L,1L,1L
     Dates: start: 20220416, end: 20220416
  16. OXYGEN [Concomitant]
     Active Substance: OXYGEN
     Dosage: 1L,1L,3L,1L,1L
     Dates: start: 20220417, end: 20220417
  17. OXYGEN [Concomitant]
     Active Substance: OXYGEN
     Dosage: 1L,1L,1L,1L
     Dates: start: 20220418, end: 20220418
  18. OXYGEN [Concomitant]
     Active Substance: OXYGEN
     Dosage: 1L,0.5L,0.5L
     Dates: start: 20220419, end: 20220419
  19. OXYGEN [Concomitant]
     Active Substance: OXYGEN
     Dosage: 0.5L,0.5L,0.5L
     Dates: start: 20220420, end: 20220420
  20. OXYGEN [Concomitant]
     Active Substance: OXYGEN
     Dosage: 0.5L,0.5L,1L,2L,4L,4L
     Dates: start: 20220421, end: 20220421
  21. OXYGEN [Concomitant]
     Active Substance: OXYGEN
     Dosage: 4L,10L,8L,5L,3L,5L,10L
     Dates: start: 20220422, end: 20220422
  22. OXYGEN [Concomitant]
     Active Substance: OXYGEN
     Dosage: 10L
     Dates: start: 20220423, end: 20220423
  23. POLARAMINE [Concomitant]
     Active Substance: DEXCHLORPHENIRAMINE MALEATE
     Dosage: UNK

REACTIONS (13)
  - Pneumonia bacterial [Fatal]
  - Condition aggravated [Fatal]
  - Respiratory disorder [Fatal]
  - Sputum purulent [Fatal]
  - Glossoptosis [Fatal]
  - Dyspnoea [Fatal]
  - Mouth breathing [Fatal]
  - COVID-19 pneumonia [Recovered/Resolved]
  - Eye movement disorder [Not Recovered/Not Resolved]
  - Effusion [Not Recovered/Not Resolved]
  - Pupillary reflex impaired [Not Recovered/Not Resolved]
  - Malnutrition [Not Recovered/Not Resolved]
  - Drug ineffective [Unknown]

NARRATIVE: CASE EVENT DATE: 20220412
